FAERS Safety Report 8111215-3 (Version None)
Quarter: 2012Q1

REPORT INFORMATION
  Report Type: 
  Country: None (occurrence: None)
  Receive Date: 20120203
  Receipt Date: 20110628
  Transmission Date: 20120608
  Serious: Yes (Other)
  Sender: FDA-Public Use
  Company Number: US-GLAXOSMITHKLINE-A0933443A

PATIENT
  Sex: Male

DRUGS (3)
  1. INDERAL [Concomitant]
  2. KEPPRA [Concomitant]
  3. LAMICTAL [Suspect]
     Indication: CONVULSION
     Dosage: 300MG TWICE PER DAY
     Route: 048
     Dates: start: 20051201

REACTIONS (1)
  - CONVULSION [None]
